FAERS Safety Report 7148392-7 (Version None)
Quarter: 2010Q4

REPORT INFORMATION
  Report Type: 
  Country: None (occurrence: None)
  Receive Date: 20101209
  Receipt Date: 20101129
  Transmission Date: 20110411
  Serious: Yes (Hospitalization, Other)
  Sender: FDA-Public Use
  Company Number: US-ELI_LILLY_AND_COMPANY-US201002003459

PATIENT
  Sex: Male
  Weight: 114.29 kg

DRUGS (11)
  1. BYETTA [Suspect]
     Dosage: UNK, UNKNOWN
     Route: 065
     Dates: start: 20050501
  2. BYETTA [Suspect]
     Dosage: 10 UG, 2/D
     Dates: start: 20070101, end: 20070101
  3. BYETTA [Suspect]
     Dosage: UNK, UNKNOWN
     Dates: end: 20080201
  4. METFORMIN [Concomitant]
     Dosage: 1 G, 2/D
  5. GLIPIZIDE [Concomitant]
     Dosage: 5 MG, 2/D
  6. ANTIHYPERTENSIVES [Concomitant]
     Indication: HYPERTENSION
  7. TRAMADOL [Concomitant]
     Dosage: 1003 MG, 3/D
  8. LOVASTATIN [Concomitant]
     Dosage: 40 MG, EACH MORNING
  9. OMEPRAZOLE [Concomitant]
     Dosage: 20 MG, DAILY (1/D)
  10. LISINOPRIL [Concomitant]
     Dosage: 10 MG, DAILY (1/D)
  11. ASPIRIN [Concomitant]

REACTIONS (4)
  - CONSTIPATION [None]
  - PANCREATITIS [None]
  - PANCREATITIS ACUTE [None]
  - WEIGHT DECREASED [None]
